FAERS Safety Report 7500976-X (Version None)
Quarter: 2011Q2

REPORT INFORMATION
  Report Type: 
  Country: None (occurrence: None)
  Receive Date: 20110524
  Receipt Date: 20110516
  Transmission Date: 20111010
  Serious: Yes (Disabling, Other)
  Sender: FDA-Public Use
  Company Number: US-CEPHALON-2011002419

PATIENT
  Sex: Female

DRUGS (5)
  1. MS CONTIN [Concomitant]
  2. ACTIQ [Suspect]
     Indication: BACK PAIN
  3. ACTIQ [Suspect]
     Indication: MIGRAINE
     Route: 002
  4. SOMA [Concomitant]
  5. NAPROSYN [Concomitant]

REACTIONS (2)
  - BACK INJURY [None]
  - DRUG PRESCRIBING ERROR [None]
